FAERS Safety Report 5534380-0 (Version None)
Quarter: 2007Q4

REPORT INFORMATION
  Report Type: 
  Country: None (occurrence: None)
  Receive Date: 20071205
  Receipt Date: 20071127
  Transmission Date: 20080405
  Serious: Yes (Hospitalization)
  Sender: FDA-Public Use
  Company Number: US-GILEAD-2007-0013917

PATIENT
  Sex: Male

DRUGS (10)
  1. LETAIRIS [Suspect]
     Indication: PULMONARY HYPERTENSION
     Route: 048
     Dates: start: 20070909
  2. LETAIRIS [Suspect]
     Route: 048
     Dates: start: 20070905, end: 20070908
  3. LETAIRIS [Suspect]
     Route: 048
     Dates: start: 20050223, end: 20070904
  4. LETAIRIS [Suspect]
     Dates: start: 20041203, end: 20050222
  5. FUROSEMIDE [Concomitant]
     Route: 048
     Dates: start: 20050101
  6. ALBUTEROL [Concomitant]
  7. ATROVENT [Concomitant]
     Route: 055
  8. PREDNISONE TAB [Concomitant]
     Dates: start: 20040101
  9. AEROBID [Concomitant]
     Route: 048
  10. SIMVASTATIN [Concomitant]

REACTIONS (1)
  - RIGHT VENTRICULAR FAILURE [None]
